FAERS Safety Report 16320406 (Version 1)
Quarter: 2019Q2

REPORT INFORMATION
  Report Type: Spontaneous
  Country: DE (occurrence: DE)
  Receive Date: 20190516
  Receipt Date: 20190516
  Transmission Date: 20190711
  Serious: Yes (Other)
  Sender: FDA-Public Use
  Company Number: DE-MYLANLABS-2019M1045612

PATIENT
  Sex: Female

DRUGS (2)
  1. OLANZAPINE. [Suspect]
     Active Substance: OLANZAPINE
     Indication: PRODUCT USED FOR UNKNOWN INDICATION
     Dosage: UNK, UNKNOWN
     Route: 065
  2. ZYPADHERA [Suspect]
     Active Substance: OLANZAPINE PAMOATE
     Indication: PRODUCT USED FOR UNKNOWN INDICATION
     Dosage: 300 MG, UNKNOWN
     Route: 030

REACTIONS (9)
  - Gastrointestinal disorder [Unknown]
  - Disturbance in social behaviour [Unknown]
  - Intestinal haemorrhage [Unknown]
  - Amnesia [Unknown]
  - Thrombosis [Unknown]
  - Weight decreased [Unknown]
  - Vocal cord disorder [Unknown]
  - Feeling abnormal [Unknown]
  - Dyspnoea [Unknown]
